FAERS Safety Report 7555569-5 (Version None)
Quarter: 2011Q2

REPORT INFORMATION
  Report Type: 
  Country: None (occurrence: None)
  Receive Date: 20110617
  Receipt Date: 20071128
  Transmission Date: 20111010
  Serious: Yes (Other)
  Sender: FDA-Public Use
  Company Number: PHHO2007VE06611

PATIENT
  Sex: Female

DRUGS (6)
  1. DIOVAN HCT [Suspect]
     Indication: HYPERTENSION
     Dosage: 80/12.5 MG, QD
     Dates: start: 19890101
  2. CAPTOPRIL [Concomitant]
  3. ATENOLOL [Concomitant]
     Dosage: 50 MG, UNK
  4. OMEPRAZOLE [Concomitant]
  5. COLLYPAN [Concomitant]
  6. ATENOLOL [Concomitant]
     Dosage: 100 MG, UNK

REACTIONS (6)
  - SYNCOPE [None]
  - TACHYCARDIA [None]
  - ABDOMINAL DISCOMFORT [None]
  - DIARRHOEA [None]
  - IRRITABLE BOWEL SYNDROME [None]
  - ASTHENIA [None]
